FAERS Safety Report 5477476-4 (Version None)
Quarter: 2007Q4

REPORT INFORMATION
  Report Type: 
  Country: None (occurrence: None)
  Receive Date: 20071004
  Receipt Date: 20070925
  Transmission Date: 20080405
  Serious: Yes (Other)
  Sender: FDA-Public Use
  Company Number: NO-PFIZER INC-2007081260

PATIENT
  Age: 52 Year
  Sex: Female

DRUGS (2)
  1. CHAMPIX [Suspect]
     Route: 048
  2. LEVOTHYROXINE SODIUM [Concomitant]
     Route: 048

REACTIONS (2)
  - DYSPEPSIA [None]
  - RECTAL HAEMORRHAGE [None]
